FAERS Safety Report 5830190-5 (Version None)
Quarter: 2008Q3

REPORT INFORMATION
  Report Type: 
  Country: None (occurrence: None)
  Receive Date: 20080801
  Receipt Date: 20080801
  Transmission Date: 20090109
  Serious: Yes (Other)
  Sender: FDA-Public Use
  Company Number: A0740665A

PATIENT
  Age: 43 Year
  Sex: Female
  Weight: 109.1 kg

DRUGS (2)
  1. ALLI [Suspect]
     Indication: WEIGHT CONTROL
     Route: 048
     Dates: start: 20080701
  2. SYNTHROID [Concomitant]

REACTIONS (11)
  - ANAL HAEMORRHAGE [None]
  - ANORECTAL DISORDER [None]
  - DIARRHOEA [None]
  - FREQUENT BOWEL MOVEMENTS [None]
  - GASTROINTESTINAL DISORDER [None]
  - GASTROINTESTINAL INJURY [None]
  - MALAISE [None]
  - MUSCLE SPASMS [None]
  - PROCTALGIA [None]
  - RECTAL DISCHARGE [None]
  - RECTAL HAEMORRHAGE [None]
